FAERS Safety Report 8841959 (Version 1)
Quarter: 2012Q4

REPORT INFORMATION
  Report Type: 
  Country: FR (occurrence: FR)
  Receive Date: 20121016
  Receipt Date: 20121016
  Transmission Date: 20130627
  Serious: No
  Sender: FDA-Public Use
  Company Number: PHHY2012FR090448

PATIENT
  Sex: Female

DRUGS (2)
  1. TERBINAFINE HYDOCHLORIDE [Suspect]
     Indication: SKIN CANDIDA
     Dosage: UNK
     Route: 048
  2. LAMISIL [Suspect]

REACTIONS (2)
  - Gastrointestinal disorder [Recovered/Resolved]
  - Drug dispensing error [Unknown]
